FAERS Safety Report 19655785 (Version 1)
Quarter: 2021Q3

REPORT INFORMATION
  Report Type: Spontaneous
  Country: US (occurrence: US)
  Receive Date: 20210804
  Receipt Date: 20210804
  Transmission Date: 20211014
  Serious: Yes (Other)
  Sender: FDA-Public Use
  Company Number: US-GLAXOSMITHKLINE-US2021GSK165683

PATIENT
  Sex: Male

DRUGS (6)
  1. ZANTAC [Suspect]
     Active Substance: RANITIDINE HYDROCHLORIDE
     Dosage: UNK
     Route: 065
     Dates: start: 2010, end: 2020
  2. ZANTAC [Suspect]
     Active Substance: RANITIDINE HYDROCHLORIDE
     Dosage: UNK
     Route: 065
     Dates: start: 2010, end: 2020
  3. RANITIDINE HYDROCHLORIDE. [Suspect]
     Active Substance: RANITIDINE HYDROCHLORIDE
     Dosage: UNK
     Route: 065
     Dates: start: 2010, end: 2020
  4. RANITIDINE CAPSULE [Suspect]
     Active Substance: RANITIDINE
     Dosage: UNK
     Route: 065
     Dates: start: 2010, end: 2020
  5. RANITIDINE HYDROCHLORIDE. [Suspect]
     Active Substance: RANITIDINE HYDROCHLORIDE
     Dosage: UNK
     Route: 065
     Dates: start: 2010, end: 2020
  6. ZANTAC [Suspect]
     Active Substance: RANITIDINE HYDROCHLORIDE
     Dosage: UNK
     Route: 065
     Dates: start: 2010, end: 2020

REACTIONS (1)
  - Prostate cancer [Unknown]
